FAERS Safety Report 12802262 (Version 1)
Quarter: 2016Q4

REPORT INFORMATION
  Report Type: Spontaneous
  Country: US (occurrence: US)
  Receive Date: 20161003
  Receipt Date: 20161003
  Transmission Date: 20170207
  Serious: No
  Sender: FDA-Public Use
  Company Number: US-JAZZ-2016-US-012443

PATIENT
  Sex: Female
  Weight: 67.13 kg

DRUGS (46)
  1. TRAMADOL. [Concomitant]
     Active Substance: TRAMADOL
  2. LOMOTIL [Concomitant]
     Active Substance: ATROPINE SULFATE\DIPHENOXYLATE HYDROCHLORIDE
  3. LOTRONEX [Concomitant]
     Active Substance: ALOSETRON HYDROCHLORIDE
  4. NAPROXEN DR [Concomitant]
  5. ROBAXIN [Concomitant]
     Active Substance: METHOCARBAMOL
  6. ZEBETA [Concomitant]
     Active Substance: BISOPROLOL FUMARATE
  7. BISOPROLOL FUMARATE. [Concomitant]
     Active Substance: BISOPROLOL FUMARATE
  8. SUMATRIPTAN. [Concomitant]
     Active Substance: SUMATRIPTAN
  9. HYDROCODONE/ACETAMINOPHEN [Concomitant]
     Active Substance: ACETAMINOPHEN\HYDROCODONE
  10. PROTONIX DR [Concomitant]
  11. DIAZEPAM. [Concomitant]
     Active Substance: DIAZEPAM
  12. XYREM [Suspect]
     Active Substance: SODIUM OXYBATE
     Indication: CATAPLEXY
     Dosage: DOSE ADJUSTMENTS
     Route: 048
     Dates: start: 200710, end: 201310
  13. OSCIMIN [Concomitant]
     Active Substance: HYOSCYAMINE SULFATE
  14. DULOXETINE HYDROCHLORIDE. [Concomitant]
     Active Substance: DULOXETINE HYDROCHLORIDE
  15. GABAPENTIN. [Concomitant]
     Active Substance: GABAPENTIN
  16. LAMOTRIGINE. [Concomitant]
     Active Substance: LAMOTRIGINE
  17. CYCLOBENZAPRINE [Concomitant]
     Active Substance: CYCLOBENZAPRINE
  18. MESTINON [Concomitant]
     Active Substance: PYRIDOSTIGMINE BROMIDE
  19. TIZANIDINE HCL [Concomitant]
     Active Substance: TIZANIDINE HYDROCHLORIDE
  20. MORPHINE SULF CR [Concomitant]
  21. CLONAZEPAM. [Concomitant]
     Active Substance: CLONAZEPAM
  22. ERGOCALCIFEROL. [Concomitant]
     Active Substance: ERGOCALCIFEROL
  23. IMITREX [Concomitant]
     Active Substance: SUMATRIPTAN SUCCINATE
  24. MAXALT [Concomitant]
     Active Substance: RIZATRIPTAN BENZOATE
  25. PSYLLIUM HUSK [Concomitant]
     Active Substance: PSYLLIUM HUSK
  26. BENADRYL ALLERGY [Concomitant]
     Active Substance: DIPHENHYDRAMINE HYDROCHLORIDE
  27. CROMOLYN [Concomitant]
     Active Substance: CROMOLYN
  28. FLORINEF ACETATE [Concomitant]
     Active Substance: FLUDROCORTISONE ACETATE
  29. XYREM [Suspect]
     Active Substance: SODIUM OXYBATE
     Dosage: 4.5 G, BID
     Route: 048
     Dates: start: 201310
  30. HYDROMORPHONE HCL ER [Concomitant]
  31. ONDANSETRON HCL [Concomitant]
     Active Substance: ONDANSETRON HYDROCHLORIDE
  32. LEXAPRO [Concomitant]
     Active Substance: ESCITALOPRAM OXALATE
  33. OXYCODONE AND ACETAMINOPHEN [Concomitant]
     Active Substance: ACETAMINOPHEN\OXYCODONE HYDROCHLORIDE
  34. FLUDROCORTISONE [Concomitant]
     Active Substance: FLUDROCORTISONE
  35. NIZORAL [Concomitant]
     Active Substance: KETOCONAZOLE
  36. PRIMIDONE. [Concomitant]
     Active Substance: PRIMIDONE
  37. XYREM [Suspect]
     Active Substance: SODIUM OXYBATE
     Indication: NARCOLEPSY
     Dosage: 3.75 G, BID
     Route: 048
     Dates: start: 200406, end: 200710
  38. PREDNISONE. [Concomitant]
     Active Substance: PREDNISONE
  39. BUTRANS [Concomitant]
     Active Substance: BUPRENORPHINE
  40. VOLTAREN [Concomitant]
     Active Substance: DICLOFENAC SODIUM
  41. WELCHOL [Concomitant]
     Active Substance: COLESEVELAM HYDROCHLORIDE
  42. KETOCONAZOLE. [Concomitant]
     Active Substance: KETOCONAZOLE
  43. MICROGESTIN [Concomitant]
     Active Substance: ETHINYL ESTRADIOL\NORETHINDRONE ACETATE
  44. VITAMIN C TR [Concomitant]
  45. FENTANYL. [Concomitant]
     Active Substance: FENTANYL
  46. DIPHENOXYLATE/ATROPINE [Concomitant]
     Active Substance: ATROPINE\DIPHENOXYLATE

REACTIONS (2)
  - Initial insomnia [Unknown]
  - Unevaluable event [Unknown]
